FAERS Safety Report 9784370 (Version 1)
Quarter: 2013Q4

REPORT INFORMATION
  Report Type: Spontaneous
  Country: US (occurrence: US)
  Receive Date: 20131226
  Receipt Date: 20131226
  Transmission Date: 20140711
  Serious: No
  Sender: FDA-Public Use
  Company Number: US-BIOGENIDEC-2013BI121554

PATIENT
  Age: 57 Year
  Sex: Female

DRUGS (5)
  1. TECFIDERA [Suspect]
     Indication: MULTIPLE SCLEROSIS
     Route: 048
     Dates: start: 20131213
  2. NYQUIL [Concomitant]
     Indication: OROPHARYNGEAL PAIN
  3. NYQUIL [Concomitant]
     Indication: THROAT IRRITATION
  4. NYQUIL [Concomitant]
     Indication: SPEECH DISORDER
  5. NYQUIL [Concomitant]
     Indication: DYSPHONIA

REACTIONS (1)
  - Aphonia [Recovered/Resolved]
